FAERS Safety Report 5839330-5 (Version None)
Quarter: 2008Q3

REPORT INFORMATION
  Report Type: 
  Country: None (occurrence: None)
  Receive Date: 20080808
  Receipt Date: 20080731
  Transmission Date: 20090109
  Serious: Yes (Other)
  Sender: FDA-Public Use
  Company Number: US-PFIZER INC-2008064797

PATIENT
  Sex: Female
  Weight: 82.6 kg

DRUGS (5)
  1. LYRICA [Suspect]
     Indication: OCCIPITAL NEURALGIA
     Route: 048
     Dates: start: 20080529, end: 20080101
  2. XANAX [Suspect]
  3. BACLOFEN [Suspect]
  4. PERCOCET [Suspect]
  5. HYDROCHLOROTHIAZIDE [Concomitant]
     Indication: HYPERTENSION

REACTIONS (5)
  - EYE SWELLING [None]
  - HYPERSENSITIVITY [None]
  - THROAT TIGHTNESS [None]
  - URTICARIA [None]
  - WHEEZING [None]
